FAERS Safety Report 12770477 (Version 2)
Quarter: 2016Q3

REPORT INFORMATION
  Report Type: Spontaneous
  Country: RS (occurrence: RS)
  Receive Date: 20160922
  Receipt Date: 20160922
  Transmission Date: 20161109
  Serious: Yes (Hospitalization, Other)
  Sender: FDA-Public Use
  Company Number: PHHY2016RS125914

PATIENT
  Sex: Male

DRUGS (7)
  1. SOLU-MEDROL [Suspect]
     Active Substance: METHYLPREDNISOLONE SODIUM SUCCINATE
     Indication: RENAL TRANSPLANT
     Dosage: 500 MG, UNK
     Route: 065
     Dates: start: 2013
  2. TACROLIMUS. [Suspect]
     Active Substance: TACROLIMUS
     Indication: RENAL TRANSPLANT
     Dosage: 1 DF, (0.15 MG/KG)
     Route: 065
     Dates: start: 2013
  3. MYCOPHENOLATE [Suspect]
     Active Substance: MYCOPHENOLIC ACID
     Indication: RENAL TRANSPLANT
     Dosage: 720 MG, BID
     Route: 065
     Dates: start: 2013
  4. PRONISON [Suspect]
     Active Substance: PREDNISONE
     Indication: RENAL TRANSPLANT
     Dosage: 20 MG, UNK
     Route: 065
     Dates: start: 2013
  5. ANTITHYMOCYTE IMMUNOGLOBULIN [Suspect]
     Active Substance: THYMOCYTE IMMUNE GLOBULIN NOS
     Indication: RENAL TRANSPLANT
     Dosage: 1 DF, (9 MG/KG OF BODY WEIGHT)
     Route: 065
     Dates: start: 2013
  6. VALGANCICLOVIR. [Suspect]
     Active Substance: VALGANCICLOVIR
     Indication: PRODUCT USED FOR UNKNOWN INDICATION
     Dosage: UNK
     Route: 065
     Dates: start: 2013
  7. TRIMETOPRIM SULFAMETOXAZOL [Suspect]
     Active Substance: SULFAMETHOXAZOLE\TRIMETHOPRIM
     Indication: PRODUCT USED FOR UNKNOWN INDICATION
     Dosage: UNK
     Route: 065
     Dates: start: 2013

REACTIONS (19)
  - Emphysema [Unknown]
  - Urinary retention [Unknown]
  - Cystitis glandularis [Unknown]
  - Squamous cell carcinoma [Unknown]
  - Bronchial haemorrhage [Unknown]
  - Leukopenia [Unknown]
  - Urinary tract infection bacterial [Unknown]
  - Urosepsis [Unknown]
  - Bladder neoplasm [Unknown]
  - Klebsiella infection [Unknown]
  - Thrombocytopenia [Unknown]
  - Urethral stenosis [Unknown]
  - Anaemia [Unknown]
  - Transitional cell carcinoma [Unknown]
  - Delayed graft function [Unknown]
  - Wound [Unknown]
  - Carcinoma in situ [Unknown]
  - Benign neoplasm of prostate [Unknown]
  - Polyomavirus test positive [Unknown]
